FAERS Safety Report 22157914 (Version 3)
Quarter: 2024Q3

REPORT INFORMATION
  Report Type: Spontaneous
  Country: US (occurrence: US)
  Receive Date: 20230330
  Receipt Date: 20240801
  Transmission Date: 20241016
  Serious: No
  Sender: BOEHRINGER INGELHEIM
  Company Number: US-BoehringerIngelheim-2023-BI-228613

PATIENT
  Age: 73 Year
  Sex: Female

DRUGS (8)
  1. OFEV [Suspect]
     Active Substance: NINTEDANIB
     Indication: Product used for unknown indication
     Dosage: 200 EVERY OTHER DAY AND 100MG ON THE DAYS IN BETWEEN
     Route: 048
     Dates: start: 20220224
  2. OFEV [Suspect]
     Active Substance: NINTEDANIB
     Dates: start: 202109
  3. OFEV [Suspect]
     Active Substance: NINTEDANIB
     Dates: start: 202309
  4. OFEV [Suspect]
     Active Substance: NINTEDANIB
     Dates: start: 20230924
  5. GEMFIBROZIL [Concomitant]
     Active Substance: GEMFIBROZIL
     Indication: Product used for unknown indication
  6. CITALOPRAM [Concomitant]
     Active Substance: CITALOPRAM\CITALOPRAM HYDROBROMIDE
     Indication: Product used for unknown indication
     Dosage: ONCE A DAY AT BEDTIME
  7. ASPIRIN [Concomitant]
     Active Substance: ASPIRIN
     Indication: Product used for unknown indication
     Dosage: 81 MG ONCE A DAY
  8. 2 L oxygen [Concomitant]
     Indication: Product used for unknown indication

REACTIONS (6)
  - Diarrhoea [Unknown]
  - Drug intolerance [Unknown]
  - Upper respiratory tract infection [Unknown]
  - Cough [Recovered/Resolved]
  - Viral infection [Not Recovered/Not Resolved]
  - Diarrhoea [Recovered/Resolved]

NARRATIVE: CASE EVENT DATE: 20230301
